FAERS Safety Report 13979082 (Version 1)
Quarter: 2017Q3

REPORT INFORMATION
  Report Type: Spontaneous
  Country: US (occurrence: US)
  Receive Date: 20170914
  Receipt Date: 20170914
  Transmission Date: 20171128
  Serious: No
  Sender: FDA-Public Use
  Company Number: US-ASTELLAS-2017US021294

PATIENT
  Age: 72 Year
  Sex: Male

DRUGS (2)
  1. XTANDI [Suspect]
     Active Substance: ENZALUTAMIDE
     Indication: PROSTATE CANCER
     Route: 048
     Dates: start: 20170503
  2. XTANDI [Suspect]
     Active Substance: ENZALUTAMIDE
     Route: 048
     Dates: end: 20170608

REACTIONS (12)
  - Underdose [Unknown]
  - Hot flush [Unknown]
  - Sleep disorder [Unknown]
  - Insomnia [Unknown]
  - Confusional state [Unknown]
  - Anxiety [Unknown]
  - Memory impairment [Unknown]
  - Parkinson^s disease [Unknown]
  - Decreased appetite [Unknown]
  - Joint swelling [Unknown]
  - Asthenia [Unknown]
  - Dizziness [Unknown]

NARRATIVE: CASE EVENT DATE: 20170509
